FAERS Safety Report 7563084-8 (Version None)
Quarter: 2011Q2

REPORT INFORMATION
  Report Type: 
  Country: None (occurrence: None)
  Receive Date: 20110622
  Receipt Date: 20110614
  Transmission Date: 20111010
  Serious: Yes (Other)
  Sender: FDA-Public Use
  Company Number: US-ASTRAZENECA-2011SE33068

PATIENT
  Age: 53 Year
  Sex: Male

DRUGS (4)
  1. LEXAPRO [Concomitant]
     Route: 048
  2. SEROQUEL [Suspect]
     Indication: BIPOLAR DISORDER
     Route: 048
  3. CONSERTA [Concomitant]
     Indication: ATTENTION DEFICIT/HYPERACTIVITY DISORDER
     Route: 048
  4. LEMICTAL [Concomitant]
     Route: 048

REACTIONS (2)
  - CONVULSION [None]
  - DRUG DOSE OMISSION [None]
